FAERS Safety Report 4720844-6 (Version None)
Quarter: 2005Q3

REPORT INFORMATION
  Report Type: 
  Country: None (occurrence: None)
  Receive Date: 20050721
  Receipt Date: 20050713
  Transmission Date: 20060218
  Serious: Yes (Death, Hospitalization)
  Sender: FDA-Public Use
  Company Number: 200511512DE

PATIENT
  Age: 51 Year
  Sex: Female
  Weight: 48 kg

DRUGS (3)
  1. TAXOTERE [Suspect]
     Indication: NON-SMALL CELL LUNG CANCER
     Route: 042
     Dates: start: 20040122, end: 20040212
  2. CORTICOSTEROIDS [Concomitant]
  3. ANTIEMETICS AND ANTINAUSEANTS [Concomitant]

REACTIONS (4)
  - ASTHENIA [None]
  - DEHYDRATION [None]
  - RENAL FAILURE [None]
  - STOMATITIS [None]
